FAERS Safety Report 8901721 (Version 2)
Quarter: 2013Q1

REPORT INFORMATION
  Report Type: Spontaneous
  Country: US (occurrence: None)
  Receive Date: 20121105
  Receipt Date: 20121228
  Transmission Date: 20140127
  Serious: No
  Sender: FDA-Public Use
  Company Number: SPI201200236

PATIENT
  Age: 63 Year
  Sex: Male
  Weight: 104.3 kg

DRUGS (19)
  1. AMITIZA [Suspect]
     Indication: CONSTIPATION
     Route: 048
     Dates: end: 201209
  2. ZYRTEC (CETIRIZINE HYDROCHLORIDE) [Concomitant]
  3. FLOVENT (FLUTICASONE PROPIONAE) [Concomitant]
  4. ALBUTEROL W/PRATROPIUM (ALBUTEROL W/IPRATROPIUM) [Concomitant]
  5. MONTELUKAST [Concomitant]
  6. VERAMYST (FLUTICASONE FUROATE) [Concomitant]
  7. ASTELIN (AZELASTINEHYDROCHLORIDE) [Concomitant]
  8. VITAMIN D (VITAMIN D) [Concomitant]
  9. LIPITOR (ATORVASTATIN CALCIUM) [Concomitant]
  10. ALLOPURINOL [Concomitant]
  11. MYCELEX (CLOTRIMAZOLE) [Concomitant]
  12. PRILOSEC [Concomitant]
  13. FLUCONAZOLE (FLUCONAZOLE) [Concomitant]
  14. BACTRIM [Concomitant]
  15. DICLOXACILLIN (DICLOXACILLIN) [Concomitant]
  16. AMBIEN (ZOLPIDEM TARTRATE) [Concomitant]
  17. XANAX (ALPRAZOLAM) [Concomitant]
  18. BACLOFEN (BACLOFEN) [Concomitant]
  19. FLEXERIL (CYCLOBENZAPRINE HYDROCHLORIDE) [Concomitant]

REACTIONS (9)
  - Complex partial seizures [None]
  - Drug effect decreased [None]
  - Urinary tract infection [None]
  - Pain [None]
  - Blood pressure systolic decreased [None]
  - Abdominal pain lower [None]
  - Enuresis [None]
  - Tremor [None]
  - Bowel movement irregularity [None]
